FAERS Safety Report 22138848 (Version 1)
Quarter: 2023Q1

REPORT INFORMATION
  Report Type: Spontaneous
  Country: US (occurrence: US)
  Receive Date: 20230327
  Receipt Date: 20230327
  Transmission Date: 20230418
  Serious: Yes (Other)
  Sender: FDA-Public Use
  Company Number: US-STRIDES ARCOLAB LIMITED-2023SP000681

PATIENT
  Age: 50 Year
  Sex: Female

DRUGS (7)
  1. ETOPOSIDE [Suspect]
     Active Substance: ETOPOSIDE
     Indication: Cervix carcinoma
     Dosage: UNK (THREE TIMES)
     Route: 065
  2. CARBOPLATIN [Suspect]
     Active Substance: CARBOPLATIN
     Indication: Cervix carcinoma
     Dosage: UNK (THREE TIMES)
     Route: 065
  3. CISPLATIN [Suspect]
     Active Substance: CISPLATIN
     Indication: Cervix carcinoma
     Dosage: UNK
     Route: 065
  4. COLCHICINE [Suspect]
     Active Substance: COLCHICINE
     Indication: Arteriospasm coronary
     Dosage: UNK
     Route: 065
  5. COLCHICINE [Suspect]
     Active Substance: COLCHICINE
     Indication: Pericarditis
  6. COLCHICINE [Suspect]
     Active Substance: COLCHICINE
     Indication: Arteriospasm coronary
  7. ATEZOLIZUMAB [Concomitant]
     Active Substance: ATEZOLIZUMAB
     Indication: Cervix carcinoma
     Dosage: UNK (TWICE)
     Route: 065

REACTIONS (3)
  - Therapy partial responder [Unknown]
  - Diplopia [Recovered/Resolved]
  - Off label use [Unknown]
